FAERS Safety Report 16134605 (Version 1)
Quarter: 2019Q2

REPORT INFORMATION
  Report Type: Spontaneous
  Country: US (occurrence: US)
  Receive Date: 20190329
  Receipt Date: 20190329
  Transmission Date: 20190711
  Serious: No
  Sender: FDA-Public Use
  Company Number: US-B. BRAUN MEDICAL INC.-2064916

PATIENT
  Sex: Male

DRUGS (1)
  1. THEOPHYLLINE IN 5% DEXTROSE INJECTIONS USP 0264-9554-10 0264-9558-10 ( [Suspect]
     Active Substance: DEXTROSE MONOHYDRATE\THEOPHYLLINE\THEOPHYLLINE ANHYDROUS

REACTIONS (1)
  - Dysphagia [None]
